FAERS Safety Report 5903824-4 (Version None)
Quarter: 2008Q3

REPORT INFORMATION
  Report Type: 
  Country: None (occurrence: None)
  Receive Date: 20080919
  Receipt Date: 20080801
  Transmission Date: 20090109
  Serious: Yes (Other)
  Sender: FDA-Public Use
  Company Number: US-WYE-H05346508

PATIENT
  Age: 57 Year
  Sex: Female

DRUGS (5)
  1. PRISTIQ [Suspect]
     Indication: MAJOR DEPRESSION
     Dosage: 50 MG 1X PER 1 DAY, ORAL ; 25 MG 1X PER 1 DAY, ORAL
     Route: 048
     Dates: start: 20080717, end: 20080720
  2. PRISTIQ [Suspect]
     Indication: MAJOR DEPRESSION
     Dosage: 50 MG 1X PER 1 DAY, ORAL ; 25 MG 1X PER 1 DAY, ORAL
     Route: 048
     Dates: start: 20080721
  3. LISINOPRIL [Concomitant]
  4. IMIPRAMINE [Concomitant]
  5. AMBIEN [Concomitant]

REACTIONS (2)
  - BLOOD PRESSURE INCREASED [None]
  - CONDITION AGGRAVATED [None]
